FAERS Safety Report 10389797 (Version 3)
Quarter: 2015Q4

REPORT INFORMATION
  Report Type: Spontaneous
  Country: US (occurrence: US)
  Receive Date: 20140818
  Receipt Date: 20151218
  Transmission Date: 20160304
  Serious: Yes (Other)
  Sender: FDA-Public Use
  Company Number: US-BAYER-2014-122867

PATIENT
  Age: 32 Year
  Sex: Female

DRUGS (8)
  1. GIANVI [Suspect]
     Active Substance: DROSPIRENONE\ETHINYL ESTRADIOL
     Dosage: UNK
     Dates: start: 20050622, end: 200610
  2. OCELLA [Suspect]
     Active Substance: DROSPIRENONE\ETHINYL ESTRADIOL
     Dosage: UNK
     Dates: start: 20050622, end: 200610
  3. BENZACLIN [Concomitant]
     Active Substance: BENZOYL PEROXIDE\CLINDAMYCIN PHOSPHATE
     Dosage: BEDTIME
     Route: 061
     Dates: start: 20060723, end: 20061001
  4. YASMIN [Suspect]
     Active Substance: DROSPIRENONE\ETHINYL ESTRADIOL
     Dosage: UNK
     Dates: start: 20050622, end: 200610
  5. YAZ [Suspect]
     Active Substance: DROSPIRENONE\ETHINYL ESTRADIOL
     Dosage: UNK
     Dates: start: 20050622, end: 200610
  6. NASONEX [Concomitant]
     Active Substance: MOMETASONE FUROATE
     Dosage: 2 SPRAYS IN EACH NOSTRIL Q D
     Route: 045
     Dates: start: 20061001
  7. FEXOFENADINE [Concomitant]
     Active Substance: FEXOFENADINE\FEXOFENADINE HYDROCHLORIDE
     Dosage: 180 MG, DAILY
     Route: 048
     Dates: start: 20060723
  8. CLARINEX [Concomitant]
     Active Substance: DESLORATADINE
     Dosage: 5 MG, DAILY
     Route: 048
     Dates: start: 20060723, end: 20061001

REACTIONS (5)
  - Injury [None]
  - Transient ischaemic attack [None]
  - Emotional distress [None]
  - Cerebrovascular accident [None]
  - Pain [None]

NARRATIVE: CASE EVENT DATE: 200610
